FAERS Safety Report 16699420 (Version 1)
Quarter: 2019Q3

REPORT INFORMATION
  Report Type: Report from Study
  Country: US (occurrence: US)
  Receive Date: 20190813
  Receipt Date: 20190813
  Transmission Date: 20191004
  Serious: No
  Sender: FDA-Public Use
  Company Number: US-ALEXION PHARMACEUTICALS INC.-A201911820

PATIENT
  Sex: Female

DRUGS (1)
  1. STRENSIQ [Suspect]
     Active Substance: ASFOTASE ALFA
     Indication: HYPOPHOSPHATASIA
     Dosage: UNK
     Route: 065

REACTIONS (7)
  - Hypoaesthesia [Unknown]
  - Neuralgia [Unknown]
  - Arthralgia [Unknown]
  - Asthenia [Unknown]
  - Malaise [Unknown]
  - Paraesthesia [Unknown]
  - Back pain [Unknown]
